FAERS Safety Report 13265175 (Version 5)
Quarter: 2017Q2

REPORT INFORMATION
  Report Type: Report from Study
  Country: None (occurrence: BE)
  Receive Date: 20170223
  Receipt Date: 20170418
  Transmission Date: 20170830
  Serious: Yes (Hospitalization)
  Sender: FDA-Public Use
  Company Number: BE-ABBVIE-17P-013-1876270-00

PATIENT
  Age: 79 Year
  Sex: Female
  Weight: 50 kg

DRUGS (21)
  1. VENETOCLAX [Suspect]
     Active Substance: VENETOCLAX
     Route: 048
     Dates: start: 20161130, end: 20170212
  2. NORMAL SALINE SOLUTION (0.9% SODIUM CHLORIDE) [Concomitant]
     Indication: PROPHYLAXIS
     Route: 042
     Dates: start: 20161108, end: 20161110
  3. VENETOCLAX [Suspect]
     Active Substance: VENETOCLAX
     Indication: CHRONIC LYMPHOCYTIC LEUKAEMIA
     Route: 048
     Dates: start: 20161102, end: 20161108
  4. EUSAPRIM FORTE [Concomitant]
     Active Substance: SULFAMETHOXAZOLE\TRIMETHOPRIM
     Indication: PROPHYLAXIS
     Route: 048
     Dates: start: 201609, end: 20170218
  5. ALLOPURINOL. [Concomitant]
     Active Substance: ALLOPURINOL
     Indication: TUMOUR LYSIS SYNDROME
     Route: 048
     Dates: start: 20161103
  6. BUDENOFALK [Concomitant]
     Active Substance: BUDESONIDE
     Indication: DIARRHOEA
     Route: 048
     Dates: start: 20161014, end: 20170113
  7. RASBURICASE [Concomitant]
     Active Substance: RASBURICASE
     Indication: PROPHYLAXIS
     Route: 042
     Dates: start: 20161109, end: 20161109
  8. NORMAL SALINE SOLUTION (0.9% SODIUM CHLORIDE) [Concomitant]
     Indication: FLUID REPLACEMENT
     Route: 042
     Dates: start: 20161115, end: 20161115
  9. NORMAL SALINE SOLUTION (0.9% SODIUM CHLORIDE) [Concomitant]
     Route: 042
     Dates: start: 20161122, end: 20161122
  10. CHLORHEXIDINE [Concomitant]
     Active Substance: CHLORHEXIDINE
     Indication: DERMATITIS
     Route: 061
     Dates: start: 20161130
  11. VENETOCLAX [Suspect]
     Active Substance: VENETOCLAX
     Route: 048
     Dates: start: 20161109, end: 20161115
  12. NORMAL SALINE SOLUTION (0.9% SODIUM CHLORIDE) [Concomitant]
     Indication: TUMOUR LYSIS SYNDROME
     Route: 042
     Dates: start: 20161101, end: 20161103
  13. NORMAL SALINE SOLUTION (0.9% SODIUM CHLORIDE) [Concomitant]
     Route: 042
     Dates: start: 20161129, end: 20161130
  14. VENETOCLAX [Suspect]
     Active Substance: VENETOCLAX
     Route: 048
     Dates: start: 20161116, end: 20161122
  15. RASBURICASE [Concomitant]
     Active Substance: RASBURICASE
     Indication: TUMOUR LYSIS SYNDROME
     Route: 042
     Dates: start: 20161102, end: 20161102
  16. IMODIUM [Concomitant]
     Active Substance: LOPERAMIDE HYDROCHLORIDE
     Indication: DIARRHOEA
     Route: 048
     Dates: start: 201609
  17. EUSAPRIM FORTE [Concomitant]
     Active Substance: SULFAMETHOXAZOLE\TRIMETHOPRIM
     Indication: PNEUMONIA
  18. DAFALGAN [Concomitant]
     Active Substance: ACETAMINOPHEN
     Indication: PYREXIA
     Route: 048
     Dates: start: 20170128
  19. VENETOCLAX [Suspect]
     Active Substance: VENETOCLAX
     Route: 048
     Dates: start: 20161123, end: 20161129
  20. ALLOPURINOL. [Concomitant]
     Active Substance: ALLOPURINOL
     Indication: PROPHYLAXIS
  21. SCHERIPROCT [Concomitant]
     Active Substance: DIBUCAINE HYDROCHLORIDE\PREDNISOLONE
     Indication: HAEMORRHOIDS
     Route: 061
     Dates: start: 20161123

REACTIONS (1)
  - General physical health deterioration [Recovered/Resolved]

NARRATIVE: CASE EVENT DATE: 20170213
